FAERS Safety Report 5605493-X (Version None)
Quarter: 2008Q1

REPORT INFORMATION
  Report Type: 
  Country: None (occurrence: None)
  Receive Date: 20080129
  Receipt Date: 20080114
  Transmission Date: 20080703
  Serious: Yes (Other)
  Sender: FDA-Public Use
  Company Number: DK-BAYER-200810952GPV

PATIENT
  Age: 39 Year
  Sex: Female

DRUGS (1)
  1. MIRENA [Suspect]
     Dosage: TOTAL DAILY DOSE: 20 ?G
     Route: 015
     Dates: start: 20041110

REACTIONS (2)
  - ECTOPIC PREGNANCY WITH INTRAUTERINE DEVICE [None]
  - UTERINE LEIOMYOMA [None]
